FAERS Safety Report 5072506-6 (Version None)
Quarter: 2006Q3

REPORT INFORMATION
  Report Type: 
  Country: None (occurrence: None)
  Receive Date: 20060807
  Receipt Date: 20060726
  Transmission Date: 20061208
  Serious: Yes (Other)
  Sender: FDA-Public Use
  Company Number: US-MERCK-0607USA05197

PATIENT
  Age: 20 Year
  Sex: Female

DRUGS (2)
  1. MAXALT [Suspect]
     Indication: MIGRAINE
     Route: 048
     Dates: start: 20010101, end: 20010101
  2. IMITREX [Suspect]
     Indication: MIGRAINE
     Route: 048
     Dates: start: 20010101, end: 20010101

REACTIONS (3)
  - GASTRIC DISORDER [None]
  - MEDICATION ERROR [None]
  - OVERDOSE [None]
